FAERS Safety Report 5366291-8 (Version None)
Quarter: 2007Q2

REPORT INFORMATION
  Report Type: 
  Country: None (occurrence: None)
  Receive Date: 20070619
  Receipt Date: 20070619
  Transmission Date: 20071010
  Serious: Yes (Other)
  Sender: FDA-Public Use
  Company Number: None

PATIENT
  Age: 72 Year
  Sex: Male

DRUGS (1)
  1. BENZOCAINE SPRAY 20% [Suspect]
     Indication: ECHOCARDIOGRAM
     Dosage: UNKNOWN  OROPHARINGE
     Route: 049

REACTIONS (7)
  - BASE EXCESS INCREASED [None]
  - BLOOD METHAEMOGLOBIN PRESENT [None]
  - BLOOD PH INCREASED [None]
  - CYANOSIS [None]
  - PCO2 DECREASED [None]
  - PO2 INCREASED [None]
  - POST PROCEDURAL COMPLICATION [None]
